FAERS Safety Report 9486951 (Version 3)
Quarter: 2013Q4

REPORT INFORMATION
  Report Type: Spontaneous
  Country: CA (occurrence: None)
  Receive Date: 20130823
  Receipt Date: 20131114
  Transmission Date: 20140711
  Serious: Yes (Hospitalization)
  Sender: FDA-Public Use
  Company Number: AUR-APL-2013-07042

PATIENT
  Age: 68 Year
  Sex: Female

DRUGS (18)
  1. RAMIPRIL (RAMIPRIL) [Suspect]
     Indication: HYPOTENSION
     Dates: end: 20121128
  2. CITALOPRAM (CITALOPRAM) [Suspect]
     Indication: DEPRESSION
  3. CELEBREX (CELECOXIB) [Suspect]
     Indication: PRODUCT USED FOR UNKNOWN INDICATION
  4. LYRICA (PREGABALIN) [Suspect]
     Indication: BACK PAIN
     Dosage: 300MG (150MG, 2 IN 1D)
     Dates: start: 1990, end: 20090825
  5. LASIX (FUROSEMIDE) [Suspect]
     Indication: FLUID RETENTION
     Dates: start: 20090715, end: 20090825
  6. INSULIN (INSULIN) [Suspect]
     Indication: PRODUCT USED FOR UNKNOWN INDICATION
  7. ACETAMINOPHEN (PARACETAMOL) [Concomitant]
  8. ATORVASTATIN (ATORVASTATIN) [Concomitant]
  9. BISOPROLOL (BISOPROLOL) [Concomitant]
  10. FENOFIBRATE (FENOFIBRATE) [Concomitant]
  11. LANTUS (INSULIN GLARGINE) [Concomitant]
  12. METFORMIN (METFORMIN) [Concomitant]
  13. METOPROLOL (METOPROLOL) [Concomitant]
  14. OXYCONTIN (OXYCONDONE HYDROCHLORIDE) [Concomitant]
  15. PANTOPRAZOLE (PANTOPRAZOLE) [Concomitant]
  16. PERINDOPRIL (PERINDOPRIL) [Concomitant]
  17. RABEPRAZOLE (RABEPRAZOLE) [Concomitant]
  18. SALBUTAMOL (SALBUTAMOL) [Concomitant]

REACTIONS (14)
  - Cognitive disorder [None]
  - Condition aggravated [None]
  - Depression [None]
  - Dysarthria [None]
  - Dyskinesia [None]
  - Encephalopathy [None]
  - Myoclonus [None]
  - Nervous system disorder [None]
  - Muscular weakness [None]
  - Tremor [None]
  - Diabetes mellitus inadequate control [None]
  - Drug ineffective [None]
  - Hypotension [None]
  - Renal failure [None]
